FAERS Safety Report 4803921-0 (Version None)
Quarter: 2005Q3

REPORT INFORMATION
  Report Type: 
  Country: None (occurrence: None)
  Receive Date: 20050920
  Receipt Date: 20050802
  Transmission Date: 20060218
  Serious: No
  Sender: FDA-Public Use
  Company Number: US-YAMANOUCHI-YPA20050415

PATIENT
  Sex: Female

DRUGS (1)
  1. VESICARE [Suspect]
     Dates: start: 20050201, end: 20050101

REACTIONS (1)
  - MUSCLE SPASMS [None]
